FAERS Safety Report 9640026 (Version 1)
Quarter: 2013Q4

REPORT INFORMATION
  Report Type: Spontaneous
  Country: US (occurrence: None)
  Receive Date: 20131022
  Receipt Date: 20131022
  Transmission Date: 20140711
  Serious: Yes (Death)
  Sender: FDA-Public Use
  Company Number: None

PATIENT
  Age: 89 Year
  Sex: Female
  Weight: 49.44 kg

DRUGS (13)
  1. WARFARIN [Suspect]
     Indication: ATRIAL FIBRILLATION
  2. BACTRIM [Suspect]
     Indication: URINARY TRACT INFECTION
  3. ALDACTONE [Concomitant]
  4. ECOTRIN [Concomitant]
  5. IMDUR [Concomitant]
  6. LANOXIN [Concomitant]
  7. NORVASC [Concomitant]
  8. PRAVACHOL [Concomitant]
  9. PROTONIX [Concomitant]
  10. RANEXA [Concomitant]
  11. SYNTHROID [Concomitant]
  12. TOPROL [Concomitant]
  13. ZANTAC [Concomitant]

REACTIONS (6)
  - Asthenia [None]
  - International normalised ratio increased [None]
  - Haematoma [None]
  - Subarachnoid haemorrhage [None]
  - Intraventricular haemorrhage [None]
  - Hydrocephalus [None]
